FAERS Safety Report 5071355-2 (Version None)
Quarter: 2006Q3

REPORT INFORMATION
  Report Type: 
  Country: None (occurrence: None)
  Receive Date: 20060804
  Receipt Date: 20060108
  Transmission Date: 20061208
  Serious: No
  Sender: FDA-Public Use
  Company Number: US-AMGEN-US164036

PATIENT
  Sex: Male

DRUGS (8)
  1. ARANESP [Suspect]
     Indication: ANAEMIA OF MALIGNANT DISEASE
     Dates: start: 20051221
  2. INTERFERON [Concomitant]
     Dates: start: 20040101
  3. AVASTIN [Concomitant]
  4. LYRICA [Concomitant]
     Route: 048
  5. VALTREX [Concomitant]
     Route: 048
  6. FLOMAX [Concomitant]
     Route: 048
  7. HYDROMORPHONE HCL [Concomitant]
     Route: 048
  8. METHYLPHENIDATE HCL [Concomitant]
     Route: 048

REACTIONS (3)
  - BACK PAIN [None]
  - HEADACHE [None]
  - PAIN [None]
